FAERS Safety Report 7281390-1 (Version None)
Quarter: 2011Q1

REPORT INFORMATION
  Report Type: 
  Country: None (occurrence: None)
  Receive Date: 20110208
  Receipt Date: 20110201
  Transmission Date: 20110831
  Serious: Yes (Other)
  Sender: FDA-Public Use
  Company Number: US-CEPHALON-2011000548

PATIENT

DRUGS (1)
  1. TRISENOX [Suspect]
     Route: 042

REACTIONS (1)
  - ELECTROCARDIOGRAM QT INTERVAL [None]
